FAERS Safety Report 12755104 (Version 2)
Quarter: 2016Q3

REPORT INFORMATION
  Report Type: Report from Study
  Country: US (occurrence: US)
  Receive Date: 20160916
  Receipt Date: 20160928
  Transmission Date: 20161109
  Serious: Yes (Hospitalization)
  Sender: FDA-Public Use
  Company Number: US-B.I. PHARMACEUTICALS,INC./RIDGEFIELD-2016-BI-54161BI

PATIENT
  Age: 60 Year
  Sex: Female

DRUGS (10)
  1. GILOTRIF [Suspect]
     Active Substance: AFATINIB
     Indication: NON-SMALL CELL LUNG CANCER
     Dosage: 40 MG
     Route: 048
     Dates: start: 20160804
  2. PROZAC [Concomitant]
     Active Substance: FLUOXETINE HYDROCHLORIDE
     Indication: PRODUCT USED FOR UNKNOWN INDICATION
     Dosage: 20 MG
     Route: 065
  3. ALPRAZOLAM. [Concomitant]
     Active Substance: ALPRAZOLAM
     Indication: ANXIETY
     Dosage: DOSE: 0.5MG PRN
     Route: 065
  4. LOSARTAN. [Concomitant]
     Active Substance: LOSARTAN
     Indication: BLOOD PRESSURE MEASUREMENT
     Route: 065
  5. PROBIOTIC [Concomitant]
     Active Substance: PROBIOTICS NOS
     Indication: PRODUCT USED FOR UNKNOWN INDICATION
     Route: 065
  6. CARVEDILOL. [Concomitant]
     Active Substance: CARVEDILOL
     Indication: BLOOD PRESSURE MEASUREMENT
     Dosage: 12.5 MG
     Route: 065
  7. PANTOPRAZOLE [Concomitant]
     Active Substance: PANTOPRAZOLE SODIUM
     Indication: GASTRIC DISORDER
     Dosage: 20 MG
     Route: 065
  8. PRAVASTATIN NA [Concomitant]
     Active Substance: PRAVASTATIN SODIUM
     Indication: BLOOD CHOLESTEROL ABNORMAL
     Dosage: 20 MG
     Route: 065
  9. IMITREX [Concomitant]
     Active Substance: SUMATRIPTAN SUCCINATE
     Indication: MIGRAINE
     Route: 065
  10. DEXAMETHASONE. [Concomitant]
     Active Substance: DEXAMETHASONE
     Indication: GAMMA RADIATION THERAPY TO BRAIN
     Dosage: DOSE: 2 MG TAPERING
     Route: 065

REACTIONS (11)
  - Diarrhoea [Not Recovered/Not Resolved]
  - Weight increased [Unknown]
  - Joint swelling [Not Recovered/Not Resolved]
  - Wound complication [Not Recovered/Not Resolved]
  - Peripheral swelling [Not Recovered/Not Resolved]
  - Rash [Not Recovered/Not Resolved]
  - Pain in extremity [Not Recovered/Not Resolved]
  - Hypertension [Not Recovered/Not Resolved]
  - Dermatitis acneiform [Not Recovered/Not Resolved]
  - Rash [Not Recovered/Not Resolved]
  - Emergency care [Recovered/Resolved]

NARRATIVE: CASE EVENT DATE: 20160822
